FAERS Safety Report 9664024 (Version 1)
Quarter: 2013Q4

REPORT INFORMATION
  Report Type: Spontaneous
  Country: GB (occurrence: GB)
  Receive Date: 20131101
  Receipt Date: 20131101
  Transmission Date: 20140711
  Serious: Yes (Life-Threatening, Hospitalization)
  Sender: FDA-Public Use
  Company Number: GB-ELI_LILLY_AND_COMPANY-GB201310006514

PATIENT
  Sex: 0

DRUGS (12)
  1. CYMBALTA [Suspect]
     Indication: ANXIETY
     Dosage: 60 MG, QD
     Route: 048
  2. CYMBALTA [Suspect]
     Indication: DEPRESSION
  3. DIAZEPAM [Concomitant]
  4. DIHYDROCODEINE [Concomitant]
  5. FESOTERODINE [Concomitant]
  6. LEVOTHYROXINE [Concomitant]
  7. MELOXICAM [Concomitant]
  8. OMEPRAZOLE [Concomitant]
  9. PARACETAMOL [Concomitant]
  10. SODIUM PICOSULFATE [Concomitant]
  11. TEMAZEPAM [Concomitant]
  12. ZOPICLONE [Concomitant]

REACTIONS (7)
  - Renal failure acute [Unknown]
  - Coma scale abnormal [Unknown]
  - Hypermetabolism [Unknown]
  - Hyperpyrexia [Unknown]
  - Electrocardiogram QT prolonged [Unknown]
  - Rhabdomyolysis [Unknown]
  - Serotonin syndrome [Recovering/Resolving]
